FAERS Safety Report 9510704 (Version 2)
Quarter: 2013Q3

REPORT INFORMATION
  Report Type: Spontaneous
  Country: US (occurrence: US)
  Receive Date: 20130909
  Receipt Date: 20130923
  Transmission Date: 20140515
  Serious: Yes (Other)
  Sender: FDA-Public Use
  Company Number: US-009507513-1309USA000217

PATIENT
  Age: 69 Year
  Sex: Male
  Weight: 70.3 kg

DRUGS (9)
  1. SINEMET [Suspect]
     Indication: PARKINSON^S DISEASE
     Dosage: 3 TABLETS OF 25/100MG, EVERY FOUR HOURS
     Route: 048
  2. COREG [Concomitant]
     Indication: CARDIOMYOPATHY
     Dosage: 6.2 MG, UNK
  3. PRINIVIL [Concomitant]
     Dosage: 10 MG, UNK
     Route: 048
  4. ZOCOR [Concomitant]
     Dosage: 20 MG, UNK
     Route: 048
  5. DIGOXIN [Concomitant]
     Indication: CARDIAC DISORDER
     Dosage: 0.25 MG, UNK
  6. COMTAN [Concomitant]
     Indication: PARKINSON^S DISEASE
     Dosage: 200 MG, UNK
  7. ASPIRIN [Concomitant]
     Dosage: UNK
  8. CHOLECALCIFEROL [Concomitant]
     Dosage: UNK
  9. VITAMIN E [Concomitant]
     Dosage: UNK

REACTIONS (5)
  - Leukaemia [Unknown]
  - Night sweats [Unknown]
  - Muscle spasms [Unknown]
  - Local swelling [Unknown]
  - Overdose [Unknown]
